FAERS Safety Report 4757633-2 (Version None)
Quarter: 2005Q3

REPORT INFORMATION
  Report Type: 
  Country: None (occurrence: None)
  Receive Date: 20050831
  Receipt Date: 20040331
  Transmission Date: 20060218
  Serious: Yes (Death, Other)
  Sender: FDA-Public Use
  Company Number: US-GLAXOSMITHKLINE-A0505417A

PATIENT
  Sex: Male

DRUGS (2)
  1. VALTREX [Suspect]
  2. FLAGYL [Suspect]

REACTIONS (2)
  - DEATH [None]
  - THROMBOCYTOPENIA [None]
